FAERS Safety Report 19281452 (Version 1)
Quarter: 2021Q2

REPORT INFORMATION
  Report Type: Spontaneous
  Country: CN (occurrence: CN)
  Receive Date: 20210521
  Receipt Date: 20210521
  Transmission Date: 20210717
  Serious: Yes (Hospitalization, Other)
  Sender: FDA-Public Use
  Company Number: CN-LUPIN PHARMACEUTICALS INC.-2021-07466

PATIENT
  Age: 59 Year
  Sex: Male

DRUGS (9)
  1. ARBIDOL [Suspect]
     Active Substance: UMIFENOVIR
     Indication: COVID-19
  2. ARBIDOL [Suspect]
     Active Substance: UMIFENOVIR
     Indication: ANTIVIRAL TREATMENT
     Dosage: UNK
     Route: 065
  3. PIPERACILLIN. [Concomitant]
     Active Substance: PIPERACILLIN SODIUM
     Indication: ANTIBIOTIC PROPHYLAXIS
     Dosage: UNK
     Route: 065
  4. ACETAMINOPHEN. [Suspect]
     Active Substance: ACETAMINOPHEN
     Indication: PYREXIA
     Dosage: UNK
     Route: 065
  5. METHYLPREDNISOLONE. [Concomitant]
     Active Substance: METHYLPREDNISOLONE
     Indication: PNEUMONITIS
     Dosage: 40 MILLIGRAM, BID
     Route: 065
  6. OSELTAMIVIR [Suspect]
     Active Substance: OSELTAMIVIR
     Indication: ANTIVIRAL TREATMENT
     Dosage: UNK
     Route: 065
  7. LOPINAVIR [Suspect]
     Active Substance: LOPINAVIR
     Indication: ANTIVIRAL TREATMENT
     Dosage: UNK
     Route: 065
  8. DARUNAVIR PROPYLENE GLYCOLATE [Suspect]
     Active Substance: DARUNAVIR PROPYLENE GLYCOLATE
     Indication: COVID-19
     Dosage: UNK
     Route: 065
  9. INTERFERON ALFA?2B [Suspect]
     Active Substance: INTERFERON ALFA-2B
     Indication: COVID-19
     Dosage: UNK
     Route: 065

REACTIONS (3)
  - Biliary obstruction [Recovering/Resolving]
  - Hepatic failure [Recovering/Resolving]
  - Off label use [Unknown]
